FAERS Safety Report 18138224 (Version 5)
Quarter: 2022Q3

REPORT INFORMATION
  Report Type: Other
  Country: CA (occurrence: None)
  Receive Date: 20200812
  Receipt Date: 20220710
  Transmission Date: 20221027
  Serious: No
  Sender: FDA-Public Use
  Company Number: CA-ROCHE-2656722

PATIENT
  Age: 44 Year
  Sex: Female

DRUGS (4)
  1. OCREVUS [Suspect]
     Active Substance: OCRELIZUMAB
     Indication: Relapsing-remitting multiple sclerosis
     Dosage: 300 MG AT DAY 0 AND 14, THEN 600 MG EVERY 6 MONTH, CONCENTRATE FOR INTRAVENOUS INFUSION?NEXT DOSE WA
     Route: 042
     Dates: start: 20200731
  2. PREDNISONE [Suspect]
     Active Substance: PREDNISONE
     Indication: Product used for unknown indication
     Route: 065
  3. SYNTHROID [Concomitant]
     Active Substance: LEVOTHYROXINE SODIUM
     Indication: Hypothyroidism
  4. METHYLPREDNISOLONE [Concomitant]
     Active Substance: METHYLPREDNISOLONE
     Dosage: 60 MINUTES PRIOR TO?INFUSION.
     Route: 042

REACTIONS (9)
  - Infusion related reaction [Recovered/Resolved]
  - Pruritus [Unknown]
  - Fatigue [Unknown]
  - Hypoaesthesia [Unknown]
  - Nausea [Recovered/Resolved]
  - Flushing [Recovered/Resolved]
  - Oropharyngeal discomfort [Recovered/Resolved]
  - Paraesthesia [Unknown]
  - SARS-CoV-2 test positive [Recovered/Resolved]

NARRATIVE: CASE EVENT DATE: 20200731
